FAERS Safety Report 17830318 (Version 1)
Quarter: 2020Q2

REPORT INFORMATION
  Report Type: Spontaneous
  Country: US (occurrence: US)
  Receive Date: 20200527
  Receipt Date: 20200527
  Transmission Date: 20200714
  Serious: No
  Sender: FDA-Public Use
  Company Number: US-ANIPHARMA-2019-US-010234

PATIENT
  Age: 72 Year
  Sex: Female
  Weight: 72.58 kg

DRUGS (4)
  1. TRACLEER [Suspect]
     Active Substance: BOSENTAN
     Dosage: UNK
     Route: 065
  2. REVATIO [Suspect]
     Active Substance: SILDENAFIL CITRATE
     Dosage: UNK
     Route: 065
  3. TERBUTALINE SULFATE TABLETS USP (NON-SPECIFIC) [Suspect]
     Active Substance: TERBUTALINE SULFATE
     Indication: PRODUCT USED FOR UNKNOWN INDICATION
     Dosage: 2.5 MG TWICE DAILY
     Route: 065
  4. TYVASO [Suspect]
     Active Substance: TREPROSTINIL
     Dosage: 3-9 BREATHS INHALED QID
     Route: 065
     Dates: start: 20100415

REACTIONS (3)
  - Erythema [Unknown]
  - Hyperhidrosis [Unknown]
  - Myalgia [Unknown]

NARRATIVE: CASE EVENT DATE: 20190529
